FAERS Safety Report 9671127 (Version 1)
Quarter: 2013Q4

REPORT INFORMATION
  Report Type: Spontaneous
  Country: US (occurrence: US)
  Receive Date: 20131106
  Receipt Date: 20131106
  Transmission Date: 20140711
  Serious: No
  Sender: FDA-Public Use
  Company Number: US-PFIZER INC-2013313361

PATIENT
  Age: 29 Year
  Sex: Male
  Weight: 104.3 kg

DRUGS (1)
  1. ADVIL [Suspect]
     Indication: HEADACHE
     Dosage: UNK, ONCE A DAY
     Route: 048
     Dates: start: 2013, end: 2013

REACTIONS (1)
  - Pallor [Unknown]
